FAERS Safety Report 8480857-8 (Version None)
Quarter: 2012Q2

REPORT INFORMATION
  Report Type: 
  Country: None (occurrence: None)
  Receive Date: 20120622
  Receipt Date: 20120606
  Transmission Date: 20120825
  Serious: Yes (Hospitalization, Disabling, Other)
  Sender: FDA-Public Use
  Company Number: ACO_30583_2012

PATIENT
  Age: 43 Year
  Sex: Female

DRUGS (6)
  1. PREDNISOLONE [Concomitant]
  2. BAKLOFEN (BACLOFEN) [Concomitant]
  3. FAMPYRA (DALFAMPRIDINE) TABLET, 10MG [Suspect]
     Indication: GAIT DISTURBANCE
     Dosage: 10 MG, BID, ORAL
     Route: 048
     Dates: start: 20111208, end: 20120516
  4. TIZANIDINE HYDROCHLORIDE [Concomitant]
  5. AZATHIOPRINE [Concomitant]
  6. AZATHIOPRINE [Concomitant]

REACTIONS (1)
  - OSTEONECROSIS [None]
